FAERS Safety Report 6115759-5 (Version None)
Quarter: 2009Q1

REPORT INFORMATION
  Report Type: 
  Country: None (occurrence: None)
  Receive Date: 20090311
  Receipt Date: 20090302
  Transmission Date: 20090719
  Serious: Yes (Hospitalization)
  Sender: FDA-Public Use
  Company Number: CHPA2009US06064

PATIENT
  Age: 50 Year
  Sex: Female

DRUGS (1)
  1. MAALOX ANTIACID/ANTIGAS MAX STR MULTI SYMPTOM (NCH) (MAGNESIUM HYDROXI [Suspect]
     Indication: THROAT IRRITATION
     Dosage: 2 TSP, ONCE/SINGLE, ORAL
     Route: 048
     Dates: start: 20090211, end: 20090211

REACTIONS (2)
  - DRUG INEFFECTIVE [None]
  - GASTROOESOPHAGEAL REFLUX DISEASE [None]
